FAERS Safety Report 7389034-5 (Version None)
Quarter: 2011Q2

REPORT INFORMATION
  Report Type: 
  Country: None (occurrence: None)
  Receive Date: 20110401
  Receipt Date: 20110330
  Transmission Date: 20111010
  Serious: Yes (Other)
  Sender: FDA-Public Use
  Company Number: US-ABBOTT-11P-163-0696596-00

PATIENT
  Sex: Female
  Weight: 83.99 kg

DRUGS (4)
  1. HUMIRA [Suspect]
  2. HUMIRA [Suspect]
     Dates: end: 20091201
  3. HUMIRA [Suspect]
     Dates: start: 20101201
  4. HUMIRA [Suspect]
     Indication: RHEUMATOID ARTHRITIS
     Dates: start: 20050101

REACTIONS (3)
  - DRUG INEFFECTIVE [None]
  - MYOCARDIAL INFARCTION [None]
  - INJECTION SITE PAIN [None]
